FAERS Safety Report 23721207 (Version 1)
Quarter: 2024Q2

REPORT INFORMATION
  Report Type: Report from Study
  Country: CA (occurrence: CA)
  Receive Date: 20240409
  Receipt Date: 20240409
  Transmission Date: 20240715
  Serious: Yes (Other)
  Sender: FDA-Public Use
  Company Number: CA-ABBVIE-5710868

PATIENT
  Age: 76 Year
  Sex: Female

DRUGS (1)
  1. SKYRIZI [Suspect]
     Active Substance: RISANKIZUMAB-RZAA
     Indication: Crohn^s disease
     Dosage: WEEK 12 AND Q 8 WEEK THEREAFTER
     Route: 058
     Dates: start: 20231201

REACTIONS (2)
  - Loss of consciousness [Recovering/Resolving]
  - Blood pressure fluctuation [Unknown]

NARRATIVE: CASE EVENT DATE: 20240301
